FAERS Safety Report 8610000-3 (Version None)
Quarter: 2012Q3

REPORT INFORMATION
  Report Type: 
  Country: None (occurrence: None)
  Receive Date: 20120822
  Receipt Date: 20120718
  Transmission Date: 20120928
  Serious: No
  Sender: FDA-Public Use
  Company Number: US-009507513-1207USA007827

PATIENT

DRUGS (8)
  1. FOSAMAX [Suspect]
  2. FOSAMAX [Suspect]
  3. FOSAMAX PLUS D [Suspect]
     Indication: OSTEOPENIA
     Dosage: UNK
     Route: 048
     Dates: start: 19960101, end: 20080101
  4. FOSAMAX [Suspect]
     Indication: OSTEOPENIA
     Dosage: UNK
     Route: 048
     Dates: start: 19960101, end: 20080501
  5. FOSAMAX [Suspect]
     Indication: OSTEOPOROSIS
  6. FOSAMAX PLUS D [Suspect]
     Indication: OSTEOPOROSIS
  7. FOSAMAX [Suspect]
     Dosage: 10 MG, UNK
     Route: 048
     Dates: start: 19980518
  8. FOSAMAX [Suspect]
     Dosage: 70 MG, QW
     Dates: start: 20021101, end: 20080501

REACTIONS (1)
  - NO ADVERSE EVENT [None]
